FAERS Safety Report 14262339 (Version 3)
Quarter: 2018Q1

REPORT INFORMATION
  Report Type: Spontaneous
  Country: DK (occurrence: DK)
  Receive Date: 20171208
  Receipt Date: 20180131
  Transmission Date: 20180508
  Serious: Yes (Other)
  Sender: FDA-Public Use
  Company Number: DK-ALVOGEN-2017-ALVOGEN-094233

PATIENT
  Age: 68 Year
  Sex: Female

DRUGS (4)
  1. KALEORID [Concomitant]
     Active Substance: POTASSIUM CHLORIDE
     Indication: PRODUCT USED FOR UNKNOWN INDICATION
     Dosage: TAKES ONE KALEORID IN THE EVENING, EVERY DAY
     Dates: start: 2006
  2. TENORMIN [Suspect]
     Active Substance: ATENOLOL
     Indication: BLOOD PRESSURE INCREASED
     Route: 048
     Dates: start: 2006, end: 20171127
  3. ATACAND [Concomitant]
     Active Substance: CANDESARTAN CILEXETIL
     Indication: PRODUCT USED FOR UNKNOWN INDICATION
     Dosage: 16 MG, EVERYDAY IN THE MORNING.
     Dates: start: 2006
  4. CENTYL MITE MED KALIUMKLORID [Concomitant]
     Indication: PRODUCT USED FOR UNKNOWN INDICATION
     Dosage: 1 DF IS 1.25MG/573MG, 2 IN THE MORNING, 2 IN THE EVENING
     Dates: start: 2006

REACTIONS (5)
  - Hot flush [Recovered/Resolved]
  - Abdominal discomfort [Unknown]
  - Feeling abnormal [Recovered/Resolved]
  - Colon cancer [Recovered/Resolved]
  - Memory impairment [Recovered/Resolved]

NARRATIVE: CASE EVENT DATE: 2016
